FAERS Safety Report 4648645-8 (Version None)
Quarter: 2005Q2

REPORT INFORMATION
  Report Type: 
  Country: None (occurrence: None)
  Receive Date: 20050427
  Receipt Date: 20050330
  Transmission Date: 20051028
  Serious: Yes (Hospitalization)
  Sender: FDA-Public Use
  Company Number: PAR_0005_2005

PATIENT
  Age: 56 Year
  Sex: Female

DRUGS (6)
  1. ISOPTIN [Suspect]
  2. PACLITAXEL [Suspect]
     Indication: ADENOCARCINOMA
     Dates: start: 20040610, end: 20040610
  3. CISPLATIN [Suspect]
     Indication: ADENOCARCINOMA
     Dates: start: 20040610, end: 20040610
  4. FLUIDIONE [Suspect]
  5. DI-GESIC [Suspect]
     Dates: start: 20040526, end: 20040610
  6. GABAPENTIN [Suspect]

REACTIONS (8)
  - ASTHENIA [None]
  - HEAD INJURY [None]
  - LOSS OF CONSCIOUSNESS [None]
  - MALAISE [None]
  - METASTASES TO CENTRAL NERVOUS SYSTEM [None]
  - OPEN WOUND [None]
  - OVERDOSE [None]
  - VOMITING [None]
